FAERS Safety Report 9272776 (Version 1)
Quarter: 2013Q2

REPORT INFORMATION
  Report Type: Spontaneous
  Country: US (occurrence: US)
  Receive Date: 20130506
  Receipt Date: 20130506
  Transmission Date: 20140414
  Serious: Yes (Hospitalization)
  Sender: FDA-Public Use
  Company Number: US-BRISTOL-MYERS SQUIBB COMPANY-18728907

PATIENT
  Age: 65 Year
  Sex: Male
  Weight: 91.7 kg

DRUGS (10)
  1. YERVOY [Suspect]
     Indication: METASTATIC MALIGNANT MELANOMA
     Dosage: 320 MG,
     Route: 042
     Dates: start: 20121116, end: 20130116
  2. PREDNISONE [Concomitant]
  3. OMEPRAZOLE [Concomitant]
     Route: 048
  4. PROCHLORPERAZINE [Concomitant]
     Indication: NAUSEA
  5. TESTOSTERONE [Concomitant]
     Route: 030
  6. SYNTHROID [Concomitant]
     Dosage: TABS
  7. OXYCODONE [Concomitant]
     Indication: PAIN
     Dosage: 1-2 TABS
  8. FLUDROCORTISONE [Concomitant]
     Dosage: TABS
  9. MIRALAX [Concomitant]
  10. MULTIVITAMIN [Concomitant]

REACTIONS (10)
  - Malignant neoplasm progression [Unknown]
  - Endocrine disorder [Unknown]
  - Constipation [Unknown]
  - Anaemia of malignant disease [Unknown]
  - Pyrexia [Unknown]
  - Vomiting [Unknown]
  - Weight decreased [Unknown]
  - Diarrhoea [Unknown]
  - Rash [Unknown]
  - Pruritus [Unknown]
